FAERS Safety Report 6099203-2 (Version None)
Quarter: 2009Q1

REPORT INFORMATION
  Report Type: 
  Country: None (occurrence: None)
  Receive Date: 20090225
  Receipt Date: 20090225
  Transmission Date: 20090719
  Serious: Yes (Other)
  Sender: FDA-Public Use
  Company Number: None

PATIENT
  Age: 48 Year
  Sex: Female
  Weight: 72.5755 kg

DRUGS (2)
  1. LEVAQUIN [Suspect]
     Indication: BRONCHITIS
     Dosage: 1 1TIMES ADAY PO
     Route: 048
     Dates: start: 20090212, end: 20090220
  2. LEVAQUIN [Suspect]
     Indication: SINUSITIS
     Dosage: 1 1TIMES ADAY PO
     Route: 048
     Dates: start: 20090212, end: 20090220

REACTIONS (8)
  - ACTIVITIES OF DAILY LIVING IMPAIRED [None]
  - ARTHRALGIA [None]
  - ECONOMIC PROBLEM [None]
  - INSOMNIA [None]
  - MUSCULOSKELETAL PAIN [None]
  - NO THERAPEUTIC RESPONSE [None]
  - PAIN [None]
  - TENDON PAIN [None]
